FAERS Safety Report 21291905 (Version 1)
Quarter: 2022Q3

REPORT INFORMATION
  Report Type: Spontaneous
  Country: US (occurrence: None)
  Receive Date: 20220904
  Receipt Date: 20220904
  Transmission Date: 20221027
  Serious: No
  Sender: FDA-Public Use
  Company Number: 2022A287751

PATIENT
  Sex: Male
  Weight: 97.5 kg

DRUGS (1)
  1. FARXIGA [Suspect]
     Active Substance: DAPAGLIFLOZIN PROPANEDIOL
     Indication: Cardiac disorder
     Route: 048

REACTIONS (4)
  - Palpitations [Recovered/Resolved]
  - Dyspnoea [Unknown]
  - Cardiac disorder [Unknown]
  - Product dose omission issue [Unknown]
